FAERS Safety Report 8042169-6 (Version None)
Quarter: 2011Q4

REPORT INFORMATION
  Report Type: 
  Country: None (occurrence: None)
  Receive Date: 20111202
  Receipt Date: 20101112
  Transmission Date: 20120403
  Serious: Yes (Life-Threatening, Hospitalization)
  Sender: FDA-Public Use
  Company Number: 2010SP060203

PATIENT
  Age: 29 Year
  Sex: Female

DRUGS (3)
  1. IMPLANON [Concomitant]
  2. BENICAR [Concomitant]
  3. NUVARING [Suspect]
     Indication: CONTRACEPTION
     Dosage: 1 DF; ;VAG
     Route: 067
     Dates: start: 20100701, end: 20101020

REACTIONS (1)
  - PULMONARY EMBOLISM [None]
